FAERS Safety Report 9691232 (Version 1)
Quarter: 2013Q4

REPORT INFORMATION
  Report Type: Spontaneous
  Country: DE (occurrence: DE)
  Receive Date: 20131115
  Receipt Date: 20131115
  Transmission Date: 20140711
  Serious: Yes (Hospitalization)
  Sender: FDA-Public Use
  Company Number: DE-JNJFOC-20131108239

PATIENT
  Age: 78 Year
  Sex: Female
  Weight: 53 kg

DRUGS (7)
  1. XARELTO [Suspect]
     Indication: PRODUCT USED FOR UNKNOWN INDICATION
     Route: 048
     Dates: start: 20121012
  2. PANTOPRAZOLE [Concomitant]
     Dosage: 40 UNKNOWN
     Route: 065
  3. ALLOPURINOL [Concomitant]
     Route: 065
  4. TORASEMID [Concomitant]
     Dosage: 20 UNKNOWN
     Route: 065
  5. CITALOPRAM [Concomitant]
     Dosage: 10 UNKNOWN
     Route: 065
  6. ZOLPIDEM [Concomitant]
     Route: 065
  7. EXFORGE [Concomitant]
     Route: 065

REACTIONS (3)
  - Abdominal pain [Recovered/Resolved]
  - Dyspnoea [Recovered/Resolved]
  - Haemorrhagic anaemia [Recovered/Resolved]
